FAERS Safety Report 24056345 (Version 1)
Quarter: 2024Q3

REPORT INFORMATION
  Report Type: Spontaneous
  Country: US (occurrence: US)
  Receive Date: 20240705
  Receipt Date: 20240705
  Transmission Date: 20241016
  Serious: Yes (Other)
  Sender: DR REDDYS
  Company Number: US-DRL-USA-LIT/USA/24/0009463

PATIENT
  Age: 51 Year
  Sex: Female

DRUGS (12)
  1. DOXORUBICIN [Suspect]
     Active Substance: DOXORUBICIN
     Indication: Adult T-cell lymphoma/leukaemia
     Dosage: SIX CYCLES
  2. DOXORUBICIN [Suspect]
     Active Substance: DOXORUBICIN
     Indication: Tropical spastic paresis
  3. DOXORUBICIN [Suspect]
     Active Substance: DOXORUBICIN
     Indication: Tropical spastic paresis
  4. CYCLOPHOSPHAMIDE [Suspect]
     Active Substance: CYCLOPHOSPHAMIDE
     Indication: Adult T-cell lymphoma/leukaemia
     Dosage: SIX CYCLES
  5. CYCLOPHOSPHAMIDE [Suspect]
     Active Substance: CYCLOPHOSPHAMIDE
     Indication: Tropical spastic paresis
  6. CYCLOPHOSPHAMIDE [Suspect]
     Active Substance: CYCLOPHOSPHAMIDE
     Indication: Tropical spastic paresis
  7. BRENTUXIMAB VEDOTIN [Suspect]
     Active Substance: BRENTUXIMAB VEDOTIN
     Indication: Adult T-cell lymphoma/leukaemia
     Dosage: SIX CYCLES
  8. BRENTUXIMAB VEDOTIN [Suspect]
     Active Substance: BRENTUXIMAB VEDOTIN
     Indication: Tropical spastic paresis
  9. BRENTUXIMAB VEDOTIN [Suspect]
     Active Substance: BRENTUXIMAB VEDOTIN
     Indication: Tropical spastic paresis
  10. PREDNISONE [Suspect]
     Active Substance: PREDNISONE
     Indication: Adult T-cell lymphoma/leukaemia
     Dosage: SIX CYCLES
  11. PREDNISONE [Suspect]
     Active Substance: PREDNISONE
     Indication: Tropical spastic paresis
  12. PREDNISONE [Suspect]
     Active Substance: PREDNISONE
     Indication: Tropical spastic paresis

REACTIONS (7)
  - Febrile neutropenia [Unknown]
  - Pneumonia [Unknown]
  - Urosepsis [Unknown]
  - Paralysis [Unknown]
  - Drug ineffective for unapproved indication [Unknown]
  - Urinary tract infection [Unknown]
  - Oral candidiasis [Unknown]
